FAERS Safety Report 25453413 (Version 1)
Quarter: 2025Q2

REPORT INFORMATION
  Report Type: Spontaneous
  Country: PL (occurrence: PL)
  Receive Date: 20250619
  Receipt Date: 20250619
  Transmission Date: 20250717
  Serious: Yes (Other)
  Sender: NOVARTIS
  Company Number: PL-002147023-NVSC2025PL095194

PATIENT
  Age: 36 Year
  Sex: Female

DRUGS (1)
  1. KISQALI [Suspect]
     Active Substance: RIBOCICLIB SUCCINATE
     Indication: Product used for unknown indication
     Route: 065
     Dates: start: 20230421, end: 20241204

REACTIONS (4)
  - Hepatic lesion [Unknown]
  - Nausea [Recovering/Resolving]
  - Asthenia [Unknown]
  - Disease progression [Unknown]

NARRATIVE: CASE EVENT DATE: 20241213
